FAERS Safety Report 22070651 (Version 1)
Quarter: 2023Q1

REPORT INFORMATION
  Report Type: Spontaneous
  Country: US (occurrence: None)
  Receive Date: 20230306
  Receipt Date: 20230306
  Transmission Date: 20230418
  Serious: No
  Sender: FDA-Public Use
  Company Number: None

PATIENT
  Sex: Female

DRUGS (1)
  1. SKYRIZI [Suspect]
     Active Substance: RISANKIZUMAB-RZAA
     Indication: Psoriasis
     Dosage: 150MG SQ?DOSING INJECT 1 PEN UNDER THE SKIN AT WEEK 0, WEEK 4, THEN EVERY 12 WEEKS THEREAFTER
     Route: 058

REACTIONS (5)
  - Upper respiratory tract infection [None]
  - Pyrexia [None]
  - Rhinorrhoea [None]
  - Cough [None]
  - Productive cough [None]
